FAERS Safety Report 20894346 (Version 1)
Quarter: 2022Q2

REPORT INFORMATION
  Report Type: Spontaneous
  Country: SE (occurrence: SE)
  Receive Date: 20220531
  Receipt Date: 20220531
  Transmission Date: 20220721
  Serious: Yes (Other)
  Sender: FDA-Public Use
  Company Number: None

PATIENT
  Age: 44 Year
  Sex: Female
  Weight: 110 kg

DRUGS (1)
  1. SAXENDA [Suspect]
     Active Substance: LIRAGLUTIDE
     Indication: Weight control
     Dosage: 6 MG/ML FROM MINIMUM DOSING 6MG UP TO MAXIMUM ACCORDING TO INSTRUCTIONS
     Route: 058
     Dates: start: 202002, end: 202006

REACTIONS (5)
  - Blood pressure increased [Recovering/Resolving]
  - Confusional state [Recovering/Resolving]
  - Alopecia [Recovering/Resolving]
  - Heart rate increased [Recovering/Resolving]
  - Injection site rash [Recovered/Resolved]

NARRATIVE: CASE EVENT DATE: 20200301
